FAERS Safety Report 21556736 (Version 8)
Quarter: 2024Q1

REPORT INFORMATION
  Report Type: Spontaneous
  Country: US (occurrence: US)
  Receive Date: 20221104
  Receipt Date: 20240111
  Transmission Date: 20240410
  Serious: No
  Sender: FDA-Public Use
  Company Number: US-PFIZER INC-202201274583

PATIENT
  Age: 83 Year
  Sex: Female
  Weight: 67.59 kg

DRUGS (5)
  1. DEPO-ESTRADIOL [Suspect]
     Active Substance: ESTRADIOL CYPIONATE
     Indication: Hormone replacement therapy
     Dosage: 1.5CC ONCE WEEKLY INTRAMUSCULAR INJECTION TO HIP
     Route: 030
     Dates: start: 1980
  2. DEPO-ESTRADIOL [Suspect]
     Active Substance: ESTRADIOL CYPIONATE
     Indication: Affective disorder
     Dosage: UNK
     Dates: start: 1988
  3. DEPO-ESTRADIOL [Suspect]
     Active Substance: ESTRADIOL CYPIONATE
     Indication: Hair disorder
     Dosage: UNK
  4. ESTRADIOL VALERATE [Concomitant]
     Active Substance: ESTRADIOL VALERATE
     Dosage: UNK
  5. ESTROGENS [Concomitant]
     Active Substance: ESTROGENS
     Dosage: UNK

REACTIONS (19)
  - Visual impairment [Not Recovered/Not Resolved]
  - Dry skin [Not Recovered/Not Resolved]
  - Vulvovaginal dryness [Not Recovered/Not Resolved]
  - Weight increased [Not Recovered/Not Resolved]
  - Blood oestrogen increased [Not Recovered/Not Resolved]
  - Irritability [Unknown]
  - Alopecia [Unknown]
  - Therapy interrupted [Unknown]
  - Product availability issue [Unknown]
  - Dry eye [Unknown]
  - Nightmare [Unknown]
  - Mood altered [Unknown]
  - Malaise [Unknown]
  - Memory impairment [Unknown]
  - Hair texture abnormal [Unknown]
  - Depression [Unknown]
  - Headache [Unknown]
  - Off label use [Unknown]
  - Product dose omission issue [Unknown]
